FAERS Safety Report 15864274 (Version 1)
Quarter: 2019Q1

REPORT INFORMATION
  Report Type: Report from Study
  Country: FR (occurrence: FR)
  Receive Date: 20190124
  Receipt Date: 20190124
  Transmission Date: 20190417
  Serious: Yes (Life-Threatening, Hospitalization, Other)
  Sender: FDA-Public Use
  Company Number: FR-BRISTOL-MYERS SQUIBB COMPANY-BMS-2019-000253

PATIENT
  Age: 75 Year
  Sex: Male
  Weight: 85 kg

DRUGS (2)
  1. NIVOLUMAB [Suspect]
     Active Substance: NIVOLUMAB
     Indication: HORMONE-REFRACTORY PROSTATE CANCER
     Dosage: 480 MG, UNK
     Route: 042
     Dates: start: 20181214
  2. RUCAPARIB [Suspect]
     Active Substance: RUCAPARIB
     Indication: HORMONE-REFRACTORY PROSTATE CANCER
     Dosage: 1200 MG, UNK
     Route: 042
     Dates: start: 20181214, end: 20190102

REACTIONS (1)
  - Muscular weakness [Not Recovered/Not Resolved]

NARRATIVE: CASE EVENT DATE: 20190102
